FAERS Safety Report 7964502-3 (Version None)
Quarter: 2011Q4

REPORT INFORMATION
  Report Type: 
  Country: None (occurrence: None)
  Receive Date: 20111208
  Receipt Date: 20111205
  Transmission Date: 20120403
  Serious: Yes (Hospitalization, Other)
  Sender: FDA-Public Use
  Company Number: US-PFIZER INC-2010075632

PATIENT
  Sex: Female
  Weight: 60.771 kg

DRUGS (18)
  1. MIRAPEX [Concomitant]
     Dosage: 0.125 MG, 1X/DAY
     Route: 048
  2. CARISOPRODOL [Concomitant]
     Dosage: 350 MG, 2X/DAY, AS NEEDED
     Route: 048
  3. CHANTIX [Interacting]
     Dosage: 1 MG, 2X/DAY
     Route: 048
     Dates: start: 20070101, end: 20070101
  4. TOPAMAX [Interacting]
     Indication: CONVULSION
     Dosage: 200 MG, 2X/DAY
  5. ASPIRIN [Concomitant]
     Dosage: 325 MG, 1X/DAY
     Route: 048
  6. PREMARIN [Concomitant]
     Dosage: 0.9 MG, 1X/DAY
     Route: 048
  7. PROPOXYPHENE HCL AND ACETAMINOPHEN [Concomitant]
     Indication: PAIN
     Dosage: 100/650 MG, EVERY 6 HOURS AS NEEDED
     Route: 048
  8. CHANTIX [Interacting]
     Dosage: 1 MG, 2X/DAY
     Route: 048
     Dates: start: 20100101, end: 20100601
  9. TOPAMAX [Interacting]
     Indication: EPILEPSY
  10. SINGULAIR [Concomitant]
     Dosage: 10 MG, 1X/DAY
     Route: 048
  11. CHANTIX [Interacting]
     Indication: SMOKING CESSATION THERAPY
     Dosage: 0.5 MG, 1X/DAY
     Route: 048
     Dates: start: 20070101, end: 20070101
  12. CHANTIX [Interacting]
     Dosage: 0.5 MG, 1X/DAY
     Route: 048
     Dates: start: 20100519, end: 20100101
  13. TEGRETOL [Suspect]
     Indication: CONVULSION
     Dosage: 200 MG, 3X/DAY
  14. NABUMETONE [Concomitant]
     Indication: PAIN
     Dosage: 500 MG, 2X/DAY, AS NEEDED
     Route: 048
  15. LORAZEPAM [Concomitant]
     Dosage: 1 MG, 3X/DAY, AS NEEDED
     Route: 048
  16. CHANTIX [Interacting]
     Dosage: 0.5 MG, 2X/DAY
     Route: 048
     Dates: start: 20100701, end: 20110701
  17. XOPENEX [Concomitant]
     Indication: WHEEZING
     Dosage: 0.63 MG/3ML 1 UNIT DOSE EVERY 4 TO 6 HOURS AS NEEDED
     Route: 055
  18. PROMETHAZINE HCL [Concomitant]
     Dosage: 25MG EVERY 6 HOURS AS NEEDED
     Route: 048

REACTIONS (25)
  - DEPRESSION [None]
  - ANXIETY DISORDER [None]
  - DRUG EFFECT DECREASED [None]
  - CEREBROVASCULAR ACCIDENT [None]
  - MEMORY IMPAIRMENT [None]
  - SUICIDAL IDEATION [None]
  - DIABETES MELLITUS [None]
  - OSTEOPENIA [None]
  - PALPITATIONS [None]
  - DRUG INTERACTION [None]
  - DEHYDRATION [None]
  - GALLBLADDER DISORDER [None]
  - BRONCHITIS CHRONIC [None]
  - IMPAIRED DRIVING ABILITY [None]
  - STARVATION [None]
  - BRONCHITIS BACTERIAL [None]
  - FIBROMYALGIA [None]
  - HALLUCINATION [None]
  - CHEST PAIN [None]
  - MALNUTRITION [None]
  - AORTIC STENOSIS [None]
  - COLONIC STENOSIS [None]
  - CONVULSION [None]
  - AMAUROSIS FUGAX [None]
  - RESTLESS LEGS SYNDROME [None]
